FAERS Safety Report 6811765-3 (Version None)
Quarter: 2010Q2

REPORT INFORMATION
  Report Type: 
  Country: None (occurrence: None)
  Receive Date: 20100628
  Receipt Date: 20100611
  Transmission Date: 20101027
  Serious: Yes (Other)
  Sender: FDA-Public Use
  Company Number: 1000014623

PATIENT
  Age: 45 Year
  Sex: Female

DRUGS (3)
  1. ESCITALOPRAM (ESCITALOPRAM OXALATE) (TABLETS) [Suspect]
     Dosage: 20 MG (20 MG, 1 IN   1 D), ORAL
     Route: 048
     Dates: end: 20100610
  2. ESCITALOPRAM [Suspect]
     Dosage: 10 MG (10 MG, 1 IN   1 D), ORAL; 1 W
     Route: 048
  3. ESCITALOPRAM [Suspect]
     Dosage: 10 MG (10 MG, 1 IN   1 D), ORAL; 1 W
     Route: 048
     Dates: start: 20100611

REACTIONS (4)
  - AGITATION [None]
  - ANXIETY [None]
  - IRRITABILITY [None]
  - TENSION [None]
